FAERS Safety Report 10157729 (Version 1)
Quarter: 2014Q2

REPORT INFORMATION
  Report Type: Report from Study
  Country: US (occurrence: US)
  Receive Date: 20140507
  Receipt Date: 20140507
  Transmission Date: 20141212
  Serious: No
  Sender: FDA-Public Use
  Company Number: PHEH2014US008655

PATIENT
  Age: 60 Year
  Sex: Male

DRUGS (10)
  1. TASIGNA [Suspect]
     Indication: LEUKOCYTOSIS
     Dosage: 300 MG, BID
     Route: 048
     Dates: start: 20140405
  2. TASIGNA [Suspect]
     Indication: OFF LABEL USE
  3. ASPIRIN [Concomitant]
     Dosage: UNK UKN, UNK
  4. PLAVIX [Concomitant]
     Dosage: UNK UKN, UNK
  5. AMLODIPINE [Concomitant]
     Dosage: UNK UKN, UNK
  6. ADVAIR [Concomitant]
     Dosage: UNK UKN, UNK
  7. DIOVAN [Concomitant]
     Dosage: UNK UKN, UNK
  8. ALBUTEROL [Concomitant]
     Dosage: UNK UKN, UNK
  9. METFORMIN [Concomitant]
     Dosage: UNK UKN, UNK
  10. METOPROLOL [Concomitant]
     Dosage: UNK UKN, UNK

REACTIONS (1)
  - Palmar-plantar erythrodysaesthesia syndrome [Not Recovered/Not Resolved]
